FAERS Safety Report 7756034-2 (Version None)
Quarter: 2011Q3

REPORT INFORMATION
  Report Type: 
  Country: None (occurrence: None)
  Receive Date: 20110915
  Receipt Date: 20110915
  Transmission Date: 20111222
  Serious: Yes (Hospitalization)
  Sender: FDA-Public Use
  Company Number: None

PATIENT
  Age: 67 Year
  Sex: Male
  Weight: 94.5 kg

DRUGS (1)
  1. FUROSEMIDE [Suspect]
     Indication: CORONARY ARTERY DISEASE
     Dosage: 40 MG BID PO
     Route: 048
     Dates: start: 20110815, end: 20110908

REACTIONS (2)
  - RENAL FAILURE ACUTE [None]
  - UNEVALUABLE EVENT [None]
